FAERS Safety Report 25902503 (Version 1)
Quarter: 2025Q4

REPORT INFORMATION
  Report Type: Spontaneous
  Country: CN (occurrence: CN)
  Receive Date: 20251009
  Receipt Date: 20251009
  Transmission Date: 20260117
  Serious: Yes (Other)
  Sender: GUERBET
  Company Number: CN-GUERBET / FUNDTRIP PHARMACEUTICALS-CN-20250337

PATIENT
  Age: 39 Year
  Sex: Male

DRUGS (1)
  1. ETHIODIZED OIL [Suspect]
     Active Substance: ETHIODIZED OIL
     Indication: Therapeutic embolisation
     Dosage: 2 INTERLOCK DETACHABLE COILS AND A MIXTURE OF TISSUE ADHESIVE AND IODINATED OIL INJECTION (RATIO 1:2

REACTIONS (3)
  - Device dislocation [Unknown]
  - Ulcer [Unknown]
  - Product use in unapproved indication [Unknown]
